FAERS Safety Report 20201846 (Version 2)
Quarter: 2022Q1

REPORT INFORMATION
  Report Type: Report from Study
  Country: CN (occurrence: CN)
  Receive Date: 20211217
  Receipt Date: 20220110
  Transmission Date: 20220423
  Serious: Yes (Other)
  Sender: FDA-Public Use
  Company Number: CN-JNJFOC-20211137170

PATIENT
  Age: 68 Year
  Sex: Female
  Weight: 45.5 kg

DRUGS (52)
  1. AMIVANTAMAB [Suspect]
     Active Substance: AMIVANTAMAB
     Indication: Non-small cell lung cancer
     Dosage: C1D1
     Route: 041
     Dates: start: 20211110, end: 20211110
  2. AMIVANTAMAB [Suspect]
     Active Substance: AMIVANTAMAB
     Dosage: C1D2
     Route: 041
     Dates: start: 20211111, end: 20211111
  3. CARBOPLATIN [Suspect]
     Active Substance: CARBOPLATIN
     Indication: Non-small cell lung cancer
     Dosage: C1D1
     Route: 042
     Dates: start: 20211110, end: 20211110
  4. PEMETREXED [Suspect]
     Active Substance: PEMETREXED
     Indication: Non-small cell lung cancer
     Dosage: C1D1
     Route: 042
     Dates: start: 20211110, end: 20211110
  5. ACETYLCYSTEINE [Concomitant]
     Active Substance: ACETYLCYSTEINE
     Indication: Cough
     Route: 055
     Dates: start: 20211012, end: 20211012
  6. AMBROXOL [Concomitant]
     Active Substance: AMBROXOL
     Indication: Cough
     Dates: start: 20211012, end: 20211012
  7. AMBROXOL [Concomitant]
     Active Substance: AMBROXOL
     Indication: Asthma
     Route: 042
     Dates: start: 20211014, end: 20211105
  8. AMBROXOL [Concomitant]
     Active Substance: AMBROXOL
     Route: 042
     Dates: start: 20211120, end: 20211124
  9. ALBUMIN HUMAN [Concomitant]
     Active Substance: ALBUMIN HUMAN
     Indication: Hypoproteinaemia
     Route: 042
     Dates: start: 20211019, end: 20211101
  10. ALBUMIN HUMAN [Concomitant]
     Active Substance: ALBUMIN HUMAN
     Route: 042
     Dates: start: 20211118, end: 20211118
  11. ALBUMIN HUMAN [Concomitant]
     Active Substance: ALBUMIN HUMAN
     Route: 042
     Dates: start: 20211122, end: 20211123
  12. BUDESONIDE [Concomitant]
     Active Substance: BUDESONIDE
     Indication: Cough
     Route: 055
     Dates: start: 20211012, end: 20211012
  13. BUDESONIDE [Concomitant]
     Active Substance: BUDESONIDE
     Indication: Productive cough
  14. ESTAZOLAM [Concomitant]
     Active Substance: ESTAZOLAM
     Indication: Insomnia
     Route: 048
     Dates: start: 20211012, end: 20211012
  15. DOXOFYLLINE [Concomitant]
     Active Substance: DOXOFYLLINE
     Indication: Asthma
     Route: 042
     Dates: start: 20211014, end: 20211105
  16. DOXOFYLLINE [Concomitant]
     Active Substance: DOXOFYLLINE
     Indication: Cough
     Route: 042
     Dates: start: 20211120, end: 20211124
  17. OMEPRAZOLE [Concomitant]
     Active Substance: OMEPRAZOLE
     Indication: Gastrooesophageal reflux disease
     Route: 042
     Dates: start: 20211014, end: 20211105
  18. OMEPRAZOLE [Concomitant]
     Active Substance: OMEPRAZOLE
     Route: 042
     Dates: start: 20211021, end: 20211021
  19. OMEPRAZOLE [Concomitant]
     Active Substance: OMEPRAZOLE
     Route: 042
     Dates: start: 20211112, end: 20211112
  20. OMEPRAZOLE [Concomitant]
     Active Substance: OMEPRAZOLE
     Route: 042
     Dates: start: 20211113, end: 20211113
  21. OMEPRAZOLE [Concomitant]
     Active Substance: OMEPRAZOLE
     Route: 042
     Dates: start: 20211114, end: 20211118
  22. OMEPRAZOLE [Concomitant]
     Active Substance: OMEPRAZOLE
     Route: 042
     Dates: start: 20211119, end: 20211125
  23. CODEINE [Concomitant]
     Active Substance: CODEINE
     Indication: Cough
     Route: 048
     Dates: start: 20211022, end: 20211025
  24. CODEINE [Concomitant]
     Active Substance: CODEINE
     Indication: Productive cough
  25. SODIUM POTASSIUM MAGNESIUM CALCIUM AND GLUCOSE [Concomitant]
     Indication: Electrolyte substitution therapy
     Route: 042
     Dates: start: 20211110, end: 20211112
  26. SODIUM POTASSIUM MAGNESIUM CALCIUM AND GLUCOSE [Concomitant]
     Indication: Hypocalcaemia
     Route: 042
     Dates: start: 20211113, end: 20211118
  27. SODIUM POTASSIUM MAGNESIUM CALCIUM AND GLUCOSE [Concomitant]
     Indication: Hypomagnesaemia
     Route: 042
     Dates: start: 20211119, end: 20211119
  28. SODIUM POTASSIUM MAGNESIUM CALCIUM AND GLUCOSE [Concomitant]
     Route: 042
     Dates: start: 20211120, end: 20211124
  29. APREPITANT [Concomitant]
     Active Substance: APREPITANT
     Indication: Prophylaxis of nausea and vomiting
     Route: 048
     Dates: start: 20211111, end: 20211112
  30. APREPITANT [Concomitant]
     Active Substance: APREPITANT
     Indication: Prophylaxis of nausea and vomiting
  31. DEXTROSE\SODIUM CHLORIDE [Concomitant]
     Active Substance: DEXTROSE\SODIUM CHLORIDE
     Indication: Nutritional supplementation
     Route: 042
     Dates: start: 20211112, end: 20211119
  32. TORSEMIDE [Concomitant]
     Active Substance: TORSEMIDE
     Indication: Prophylaxis
     Route: 042
     Dates: start: 20211110, end: 20211119
  33. MAGNESIUM ISOGLYCYRRHIZINATE [Concomitant]
     Active Substance: MAGNESIUM ISOGLYCYRRHIZINATE
     Indication: Prophylaxis
     Route: 042
     Dates: start: 20211110, end: 20211125
  34. METOCLOPRAMIDE [Concomitant]
     Active Substance: METOCLOPRAMIDE
     Indication: Prophylaxis of nausea and vomiting
     Route: 030
     Dates: start: 20211111, end: 20211111
  35. METOCLOPRAMIDE [Concomitant]
     Active Substance: METOCLOPRAMIDE
     Indication: Gastrooesophageal reflux disease
     Route: 030
     Dates: start: 20211116, end: 20211117
  36. OLANZAPINE [Concomitant]
     Active Substance: OLANZAPINE
     Indication: Gastrooesophageal reflux disease
     Route: 048
     Dates: start: 20211112, end: 20211116
  37. ESOMEPRAZOLE [Concomitant]
     Active Substance: ESOMEPRAZOLE
     Indication: Gastrooesophageal reflux disease
     Route: 048
     Dates: start: 20211112, end: 20211118
  38. VITAMIN C [Concomitant]
     Active Substance: ASCORBIC ACID
     Indication: Nutritional supplementation
     Route: 042
     Dates: start: 20211112, end: 20211119
  39. VITAMIN B6 [Concomitant]
     Active Substance: PYRIDOXINE HYDROCHLORIDE
     Indication: Nutritional supplementation
     Route: 042
     Dates: start: 20211112, end: 20211119
  40. ANISODAMINE HYDROCHLORIDE [Concomitant]
     Indication: Abdominal pain
     Route: 030
     Dates: start: 20211113, end: 20211113
  41. AMINO ACIDS, SOURCE UNSPECIFIED [Concomitant]
     Active Substance: AMINO ACIDS, SOURCE UNSPECIFIED
     Indication: Nutritional supplementation
     Route: 042
     Dates: start: 20211113, end: 20211119
  42. FAT EMULSION NOS [Concomitant]
     Active Substance: EGG PHOSPHOLIPIDS\SAFFLOWER OIL\SOYBEAN OIL
     Indication: Nutritional supplementation
     Route: 042
     Dates: start: 20211113, end: 20211119
  43. UNSPECIFIED INGREDIENT [Concomitant]
     Active Substance: UNSPECIFIED INGREDIENT
     Indication: Decreased appetite
     Route: 048
     Dates: start: 20211115, end: 20211123
  44. ALCOHOL [Concomitant]
     Active Substance: ALCOHOL
     Indication: Haemorrhage prophylaxis
     Route: 042
     Dates: start: 20211116, end: 20211116
  45. AMINOMETHYLBENZOIC ACID [Concomitant]
     Active Substance: AMINOMETHYLBENZOIC ACID
     Indication: Haemorrhage prophylaxis
     Route: 042
     Dates: start: 20211116, end: 20211116
  46. TRAMADOL [Concomitant]
     Active Substance: TRAMADOL
     Indication: Abdominal pain
     Route: 030
     Dates: start: 20211116, end: 20211116
  47. TRAMADOL [Concomitant]
     Active Substance: TRAMADOL
     Route: 030
     Dates: start: 20211119, end: 20211119
  48. CEFOPERAZONE\SULBACTAM [Concomitant]
     Active Substance: CEFOPERAZONE\SULBACTAM
     Indication: Infection prophylaxis
     Route: 042
     Dates: start: 20211116, end: 20211125
  49. LEVOFLOXACIN [Concomitant]
     Active Substance: LEVOFLOXACIN
     Indication: Infection prophylaxis
     Route: 042
     Dates: start: 20211116, end: 20211125
  50. PALONOSETRON HYDROCHLORIDE [Concomitant]
     Active Substance: PALONOSETRON HYDROCHLORIDE
     Indication: Gastrooesophageal reflux disease
     Route: 042
     Dates: start: 20211117, end: 20211118
  51. PALONOSETRON HYDROCHLORIDE [Concomitant]
     Active Substance: PALONOSETRON HYDROCHLORIDE
     Route: 042
     Dates: start: 20211119, end: 20211119
  52. CETYLPYRIDINIUM CHLORIDE [Concomitant]
     Active Substance: CETYLPYRIDINIUM CHLORIDE
     Indication: Stomatitis
     Dates: start: 20211118

REACTIONS (4)
  - Hypokalaemia [Recovered/Resolved]
  - Neutrophil count decreased [Recovered/Resolved]
  - White blood cell count decreased [Recovered/Resolved]
  - Platelet count decreased [Recovered/Resolved]

NARRATIVE: CASE EVENT DATE: 20211116
